FAERS Safety Report 6272382-X (Version None)
Quarter: 2009Q3

REPORT INFORMATION
  Report Type: 
  Country: None (occurrence: None)
  Receive Date: 20090713
  Receipt Date: 20090217
  Transmission Date: 20100115
  Serious: No
  Sender: FDA-Public Use
  Company Number: 2009BM000039

PATIENT
  Age: 23 Year
  Sex: Female
  Weight: 65.7716 kg

DRUGS (1)
  1. KUVAN [Suspect]
     Indication: PHENYLKETONURIA
     Dosage: 1300 MG; QD; PO
     Route: 048
     Dates: start: 20080901

REACTIONS (1)
  - ALOPECIA [None]
